FAERS Safety Report 5851833-6 (Version None)
Quarter: 2008Q3

REPORT INFORMATION
  Report Type: 
  Country: None (occurrence: None)
  Receive Date: 20080813
  Receipt Date: 20080417
  Transmission Date: 20090109
  Serious: Yes (Other)
  Sender: FDA-Public Use
  Company Number: 08H-163-0314175-00

PATIENT
  Sex: 0

DRUGS (1)
  1. LEVOPHED [Suspect]
     Dates: start: 20080401

REACTIONS (2)
  - HYPERTENSION [None]
  - INCORRECT DRUG ADMINISTRATION RATE [None]
